FAERS Safety Report 12110838 (Version 1)
Quarter: 2016Q1

REPORT INFORMATION
  Report Type: Spontaneous
  Country: US (occurrence: US)
  Receive Date: 20160224
  Receipt Date: 20160224
  Transmission Date: 20160526
  Serious: No
  Sender: FDA-Public Use
  Company Number: US-JAZZ-2015-US-005054

PATIENT
  Sex: Male

DRUGS (6)
  1. PRIALT [Suspect]
     Active Substance: ZICONOTIDE ACETATE
     Dosage: 0.013 ?G, QH
     Route: 037
     Dates: start: 20150406
  2. GRALISE [Concomitant]
     Active Substance: GABAPENTIN
  3. PRIALT [Suspect]
     Active Substance: ZICONOTIDE ACETATE
     Indication: PAIN
     Dosage: 0.016 ?G, QH
     Route: 037
     Dates: start: 20150305, end: 20150324
  4. PRIALT [Suspect]
     Active Substance: ZICONOTIDE ACETATE
     Dosage: 0.013 ?G, QH
     Route: 037
     Dates: start: 20150404, end: 20150406
  5. ZUBSOLV [Concomitant]
     Active Substance: BUPRENORPHINE HYDROCHLORIDE\NALOXONE HYDROCHLORIDE
     Dosage: 5.7 MG, TID
  6. PRIALT [Suspect]
     Active Substance: ZICONOTIDE ACETATE
     Dosage: 0.015 ?G, QH
     Route: 037
     Dates: start: 20150324, end: 20150404

REACTIONS (3)
  - Disturbance in attention [Recovered/Resolved]
  - Therapeutic response decreased [Recovered/Resolved]
  - Mood altered [Recovered/Resolved]
